FAERS Safety Report 7394749-9 (Version None)
Quarter: 2011Q2

REPORT INFORMATION
  Report Type: 
  Country: None (occurrence: None)
  Receive Date: 20110405
  Receipt Date: 20110401
  Transmission Date: 20111010
  Serious: Yes (Hospitalization, Other)
  Sender: FDA-Public Use
  Company Number: US-PFIZER INC-2011073288

PATIENT
  Sex: Female
  Weight: 73 kg

DRUGS (8)
  1. MIRALAX [Concomitant]
     Indication: CONSTIPATION
     Dosage: UNK
  2. METOPROLOL [Concomitant]
     Indication: HYPERTENSION
     Dosage: 50 MG, 2X/DAY
  3. ZOFRAN [Concomitant]
     Indication: PROPHYLAXIS
     Dosage: AS NEEDED
  4. CALCIUM [Concomitant]
     Dosage: UNK
  5. VITAMIN D [Concomitant]
     Dosage: UNK
  6. SIMVASTATIN [Concomitant]
     Dosage: 20 MG, DAILY
  7. SUTENT [Suspect]
     Indication: RENAL CELL CARCINOMA
     Dosage: 50 MG, DAILY
     Route: 048
     Dates: start: 20110302, end: 20110301
  8. EVISTA [Concomitant]
     Dosage: 60 MG, DAILY

REACTIONS (14)
  - RENAL IMPAIRMENT [None]
  - THROMBOTIC THROMBOCYTOPENIC PURPURA [None]
  - CONFUSIONAL STATE [None]
  - PYREXIA [None]
  - BLOOD LACTATE DEHYDROGENASE ABNORMAL [None]
  - GENERAL PHYSICAL HEALTH DETERIORATION [None]
  - PLATELET COUNT DECREASED [None]
  - INCONTINENCE [None]
  - VERTIGO [None]
  - DEHYDRATION [None]
  - MENINGEAL DISORDER [None]
  - LETHARGY [None]
  - DECREASED APPETITE [None]
  - HYPOTHYROIDISM [None]
